FAERS Safety Report 25531610 (Version 2)
Quarter: 2025Q3

REPORT INFORMATION
  Report Type: Spontaneous
  Country: US (occurrence: US)
  Receive Date: 20250709
  Receipt Date: 20250810
  Transmission Date: 20251021
  Serious: Yes (Disabling, Congenital Anomaly, Other)
  Sender: ALEXION PHARMACEUTICALS
  Company Number: US-ASTRAZENECA-202507USA002075US

PATIENT
  Age: 70 Year
  Sex: Male

DRUGS (8)
  1. CRESTOR [Suspect]
     Active Substance: ROSUVASTATIN CALCIUM
     Route: 065
  2. PEGCETACOPLAN [Suspect]
     Active Substance: PEGCETACOPLAN
     Indication: IgA nephropathy
     Dosage: 1080 MILLIGRAM, Q2W
     Dates: start: 20231206, end: 20250518
  3. METOPROLOL [Suspect]
     Active Substance: METOPROLOL
  4. AMLODIPINE [Suspect]
     Active Substance: AMLODIPINE BESYLATE
  5. CHOLECALCIFEROL [Suspect]
     Active Substance: CHOLECALCIFEROL
  6. FINASTERIDE [Suspect]
     Active Substance: FINASTERIDE
  7. TAMSULOSIN [Suspect]
     Active Substance: TAMSULOSIN
  8. LOSARTAN [Suspect]
     Active Substance: LOSARTAN

REACTIONS (8)
  - Osteonecrosis [Not Recovered/Not Resolved]
  - Rotator cuff syndrome [Not Recovered/Not Resolved]
  - Osteoarthritis [Not Recovered/Not Resolved]
  - Osteoarthritis [Not Recovered/Not Resolved]
  - Limb injury [Not Recovered/Not Resolved]
  - Infarction [Unknown]
  - Fall [Recovered/Resolved]
  - Joint range of motion decreased [Not Recovered/Not Resolved]
